FAERS Safety Report 6774524-6 (Version None)
Quarter: 2010Q2

REPORT INFORMATION
  Report Type: 
  Country: None (occurrence: None)
  Receive Date: 20100617
  Receipt Date: 20100614
  Transmission Date: 20101027
  Serious: Yes (Death)
  Sender: FDA-Public Use
  Company Number: PHHY2010CA38507

PATIENT

DRUGS (1)
  1. ALISKIREN ALI+ [Suspect]
     Dosage: UNK
     Dates: start: 20091111

REACTIONS (1)
  - DEATH [None]
